FAERS Safety Report 18214049 (Version 1)
Quarter: 2020Q3

REPORT INFORMATION
  Report Type: Spontaneous
  Country: US (occurrence: US)
  Receive Date: 20200831
  Receipt Date: 20200831
  Transmission Date: 20201103
  Serious: Yes (Life-Threatening, Other)
  Sender: FDA-Public Use
  Company Number: None

PATIENT
  Age: 65 Year
  Sex: Male
  Weight: 75 kg

DRUGS (2)
  1. PROPOFOL (PROPOFOL 10MG/ML INJ, EMULSION) [Suspect]
     Active Substance: PROPOFOL
     Indication: SEDATION
     Dates: start: 20200623, end: 20200625
  2. DILTIAZEM (DILTIAZEM HCL 1MG/ML NACL 0.9% INJ, BAG, 125ML) [Suspect]
     Active Substance: DILTIAZEM HYDROCHLORIDE
     Indication: ATRIAL FLUTTER
     Dosage: ?          OTHER STRENGTH:1MG/ML, 125 ML;?
     Dates: start: 20200623, end: 20200624

REACTIONS (1)
  - Hypotension [None]

NARRATIVE: CASE EVENT DATE: 20200623
